FAERS Safety Report 19488193 (Version 1)
Quarter: 2021Q3

REPORT INFORMATION
  Report Type: Report from Study
  Country: GB (occurrence: GB)
  Receive Date: 20210702
  Receipt Date: 20210702
  Transmission Date: 20211014
  Serious: Yes (Other)
  Sender: FDA-Public Use
  Company Number: NVSC2021GB145790

PATIENT
  Age: 77 Year
  Sex: Male

DRUGS (1)
  1. LUTATHERA [Suspect]
     Active Substance: LUTETIUM OXODOTREOTIDE LU-177
     Indication: NEUROENDOCRINE TUMOUR
     Dosage: UNK (10 WEEKLY)
     Route: 042
     Dates: start: 20210420

REACTIONS (3)
  - Joint swelling [Unknown]
  - Heart valve incompetence [Unknown]
  - Appetite disorder [Unknown]
